FAERS Safety Report 8261609-0 (Version None)
Quarter: 2012Q2

REPORT INFORMATION
  Report Type: 
  Country: None (occurrence: None)
  Receive Date: 20120405
  Receipt Date: 20120330
  Transmission Date: 20120825
  Serious: No
  Sender: FDA-Public Use
  Company Number: US-PFIZER INC-2012022789

PATIENT
  Sex: Female
  Weight: 82.993 kg

DRUGS (8)
  1. LOPERAMIDE [Concomitant]
     Dosage: UNK
  2. FUROSEMIDE [Concomitant]
     Dosage: UNK
  3. LIPITOR [Concomitant]
  4. ACETYLSALICYLIC ACID [Concomitant]
     Dosage: UNK
  5. CHERATUSSIN [Concomitant]
     Indication: COUGH
     Dosage: UNK
  6. POTASSIUM CHLORIDE [Concomitant]
     Dosage: 20 MEQ, 2X/DAY
  7. XALKORI [Suspect]
     Indication: NON-SMALL CELL LUNG CANCER
     Dosage: 250 MG, 2X/DAY
     Route: 048
     Dates: start: 20120113
  8. CALCIUM [Concomitant]
     Dosage: UNK

REACTIONS (7)
  - NAUSEA [None]
  - DIZZINESS [None]
  - MICTURITION DISORDER [None]
  - PHOTOPSIA [None]
  - DYSURIA [None]
  - OEDEMA PERIPHERAL [None]
  - VOMITING [None]
